FAERS Safety Report 14210726 (Version 1)
Quarter: 2017Q4

REPORT INFORMATION
  Report Type: Not Available
  Country: None (occurrence: US)
  Receive Date: 20171121
  Receipt Date: 20171121
  Transmission Date: 20180321
  Serious: No
  Sender: FDA-Public Use
  Company Number: US-AKORN-68487

PATIENT
  Sex: Male

DRUGS (1)
  1. AZASITE [Suspect]
     Active Substance: AZITHROMYCIN MONOHYDRATE

REACTIONS (1)
  - Eye pain [Unknown]
